FAERS Safety Report 20007408 (Version 2)
Quarter: 2021Q4

REPORT INFORMATION
  Report Type: Report from Study
  Country: AU (occurrence: AU)
  Receive Date: 20211028
  Receipt Date: 20211108
  Transmission Date: 20220303
  Serious: Yes (Other)
  Sender: FDA-Public Use
  Company Number: AU-NOVARTISPH-NVSC2021AU243020

PATIENT
  Age: 59 Year
  Sex: Male

DRUGS (4)
  1. EZETIMIBE [Interacting]
     Active Substance: EZETIMIBE
     Indication: Blood cholesterol decreased
     Dosage: UNK, QD (10 UNITS)
     Route: 048
  2. ROSUVASTATIN CALCIUM [Interacting]
     Active Substance: ROSUVASTATIN CALCIUM
     Indication: Blood cholesterol decreased
     Dosage: UNK, QD (40 UNITS)
     Route: 048
  3. UNSPECIFIED INGREDIENT [Concomitant]
     Active Substance: UNSPECIFIED INGREDIENT
     Indication: Product used for unknown indication
     Dosage: UNK
     Route: 065
  4. NITROGLYCERIN [Concomitant]
     Active Substance: NITROGLYCERIN
     Indication: Angina pectoris
     Dosage: UNK
     Route: 060

REACTIONS (14)
  - Blood cholesterol increased [Unknown]
  - Lipids increased [Unknown]
  - Myocardial infarction [Unknown]
  - Cerebrovascular accident [Unknown]
  - Angina pectoris [Unknown]
  - Diabetes mellitus [Unknown]
  - Cardiac disorder [Unknown]
  - Coronary artery disease [Unknown]
  - Lipoprotein (a) increased [Unknown]
  - Memory impairment [Unknown]
  - Hypertension [Unknown]
  - Myalgia [Unknown]
  - Headache [Unknown]
  - Drug interaction [Unknown]

NARRATIVE: CASE EVENT DATE: 20210111
